FAERS Safety Report 4700156-7 (Version None)
Quarter: 2005Q2

REPORT INFORMATION
  Report Type: 
  Country: None (occurrence: None)
  Receive Date: 20050627
  Receipt Date: 20050615
  Transmission Date: 20051028
  Serious: Yes (Other)
  Sender: FDA-Public Use
  Company Number: US-JNJFOC-20050405697

PATIENT
  Sex: Female
  Weight: 61.24 kg

DRUGS (2)
  1. REMICADE [Suspect]
     Route: 042
  2. PREDNISONE TAB [Concomitant]

REACTIONS (3)
  - CARDIAC DISORDER [None]
  - DRUG INEFFECTIVE [None]
  - LUNG DISORDER [None]
